FAERS Safety Report 11160874 (Version 1)
Quarter: 2015Q2

REPORT INFORMATION
  Report Type: Spontaneous
  Country: US (occurrence: US)
  Receive Date: 20150604
  Receipt Date: 20150604
  Transmission Date: 20150821
  Serious: No
  Sender: FDA-Public Use
  Company Number: US-SA-2014SA070203

PATIENT
  Age: 69 Year
  Sex: Male

DRUGS (3)
  1. SOLOSTAR [Concomitant]
     Active Substance: DEVICE
     Indication: DIABETES MELLITUS
  2. LANTUS SOLOSTAR [Suspect]
     Active Substance: INSULIN GLARGINE
     Indication: DIABETES MELLITUS
     Dosage: DOSE: 24 UNITS IN THE MORNING AND 6 UNITS AT NIGHT
     Route: 065
  3. LANTUS SOLOSTAR [Suspect]
     Active Substance: INSULIN GLARGINE
     Indication: DIABETES MELLITUS
     Dosage: DOSE:20 UNITS IN THE MORNNG AND 10 UNITS AT NIGHT
     Route: 065

REACTIONS (8)
  - Oral disorder [Unknown]
  - Rash macular [Recovered/Resolved]
  - Rhinorrhoea [Unknown]
  - Blood glucose increased [Unknown]
  - Rash [Unknown]
  - Lacrimation increased [Unknown]
  - Erythema [Recovered/Resolved]
  - Pollakiuria [Unknown]
